FAERS Safety Report 4691621-X (Version None)
Quarter: 2005Q2

REPORT INFORMATION
  Report Type: 
  Country: None (occurrence: None)
  Receive Date: 20050608
  Receipt Date: 20040809
  Transmission Date: 20051028
  Serious: Yes (Other)
  Sender: FDA-Public Use
  Company Number: 346702

PATIENT

DRUGS (3)
  1. ACCUTANE [Suspect]
     Indication: ACNE
     Dosage: 40 MG DAILY ORAL
     Route: 048
     Dates: start: 20030815, end: 20030907
  2. ACCUTANE [Suspect]
     Indication: OILY SKIN
     Dosage: 40 MG DAILY ORAL
     Route: 048
     Dates: start: 20030815, end: 20030907
  3. ACCUTANE [Suspect]
     Indication: SCAR
     Dosage: 40 MG DAILY ORAL
     Route: 048
     Dates: start: 20030815, end: 20030907

REACTIONS (2)
  - NO ADVERSE EFFECT [None]
  - PREGNANCY [None]
